FAERS Safety Report 7202817-7 (Version None)
Quarter: 2010Q4

REPORT INFORMATION
  Report Type: 
  Country: None (occurrence: None)
  Receive Date: 20101216
  Receipt Date: 20101119
  Transmission Date: 20110411
  Serious: Yes (Other)
  Sender: FDA-Public Use
  Company Number: 2010-4297

PATIENT
  Age: 64 Year
  Sex: Male

DRUGS (1)
  1. APO-GO PEN (APO-GO) (APOMORPHINE HYDROCHLORIDE) (APOMORPHINE HYDROCHLO [Suspect]
     Indication: PRODUCT USED FOR UNKNOWN INDICATION
     Dosage: 6-8 TIMES A DAY (6-8 TIMES A DAY)
     Dates: start: 20081113, end: 20101001

REACTIONS (1)
  - MYOCARDIAL INFARCTION [None]
